FAERS Safety Report 4734337-3 (Version None)
Quarter: 2005Q3

REPORT INFORMATION
  Report Type: 
  Country: None (occurrence: None)
  Receive Date: 20050804
  Receipt Date: 20050707
  Transmission Date: 20060218
  Serious: Yes (Hospitalization)
  Sender: FDA-Public Use
  Company Number: US-BOEHRINGER INGELHEIM PHARMACEUTICALS, INC.-2005-BP-11447BP

PATIENT
  Sex: Male
  Weight: 122 kg

DRUGS (5)
  1. TIPRANAVIR / RITONAVIR CAPSULES [Suspect]
     Indication: HIV INFECTION
     Dosage: TPV/R 1000/500 MG
     Route: 048
     Dates: start: 20050629, end: 20050706
  2. TIPRANAVIR / RITONAVIR CAPSULES [Suspect]
     Dosage: TPV/R 1000/500 MG
     Route: 048
     Dates: start: 20041205, end: 20050628
  3. FUZEON [Concomitant]
     Indication: HIV INFECTION
     Route: 058
  4. VIREAD [Concomitant]
     Indication: HIV INFECTION
     Route: 048
  5. ZITHROMAX [Concomitant]
     Indication: INFECTION PROPHYLAXIS
     Route: 048

REACTIONS (3)
  - HAEMORRHAGE [None]
  - IMPLANT SITE HAEMORRHAGE [None]
  - LARGE INTESTINAL HAEMORRHAGE [None]
